FAERS Safety Report 6305062-2 (Version None)
Quarter: 2009Q3

REPORT INFORMATION
  Report Type: 
  Country: None (occurrence: None)
  Receive Date: 20090811
  Receipt Date: 20090730
  Transmission Date: 20100115
  Serious: Yes (Hospitalization)
  Sender: FDA-Public Use
  Company Number: US-PFIZER INC-2009249023

PATIENT
  Sex: Male
  Weight: 36.6 kg

DRUGS (4)
  1. BLINDED *PLACEBO [Suspect]
     Dosage: UNK MG, 2X/DAY
     Route: 048
     Dates: start: 20090730, end: 20090730
  2. BLINDED PREGABALIN [Suspect]
     Dosage: UNK MG, 2X/DAY
     Route: 048
     Dates: start: 20090730, end: 20090730
  3. ZONEGRAN [Concomitant]
     Dosage: UNK
     Route: 048
     Dates: start: 20090301
  4. FLINTSTONES MULTIPLE VITAMINS [Concomitant]
     Dosage: UNK
     Route: 048
     Dates: start: 20030101

REACTIONS (3)
  - DEPRESSED LEVEL OF CONSCIOUSNESS [None]
  - DIZZINESS [None]
  - HEADACHE [None]
